FAERS Safety Report 9767815 (Version 1)
Quarter: 2013Q4

REPORT INFORMATION
  Report Type: Spontaneous
  Country: FR (occurrence: FR)
  Receive Date: 20131217
  Receipt Date: 20131217
  Transmission Date: 20140711
  Serious: Yes (Hospitalization)
  Sender: FDA-Public Use
  Company Number: FR-ACORDA-ACO_100786_2013

PATIENT
  Age: 46 Year
  Sex: Female
  Weight: 44 kg

DRUGS (6)
  1. FAMPYRA [Suspect]
     Indication: GAIT DISTURBANCE
     Dosage: 10 MG, BID
     Route: 048
     Dates: start: 20130603
  2. TRAMADOL [Concomitant]
     Indication: RIB FRACTURE
     Dosage: UNK,UNK
     Route: 065
     Dates: start: 201309, end: 20131014
  3. MANTADIX [Concomitant]
     Indication: ASTHENIA
     Dosage: UNK,UNK
     Route: 065
     Dates: end: 20131014
  4. LIORESAL [Concomitant]
     Indication: MUSCLE SPASTICITY
     Dosage: UNK,UNK
     Route: 065
  5. CELLCEPT [Concomitant]
     Indication: MULTIPLE SCLEROSIS
     Dosage: 1 GR,BID
     Route: 048
     Dates: start: 201212
  6. DEROXAT [Concomitant]
     Indication: PRODUCT USED FOR UNKNOWN INDICATION
     Dosage: UNK,UNK
     Route: 065

REACTIONS (1)
  - Grand mal convulsion [Recovered/Resolved]
